FAERS Safety Report 15625072 (Version 7)
Quarter: 2019Q4

REPORT INFORMATION
  Report Type: Report from Study
  Country: CA (occurrence: CA)
  Receive Date: 20181116
  Receipt Date: 20191227
  Transmission Date: 20200122
  Serious: Yes (Hospitalization, Other)
  Sender: FDA-Public Use
  Company Number: PHHY2018CA055553

PATIENT
  Age: 56 Year
  Sex: Female
  Weight: 115 kg

DRUGS (8)
  1. ENTRESTO [Suspect]
     Active Substance: SACUBITRIL\VALSARTAN
     Indication: CARDIAC FAILURE
     Dosage: 100 MG (SACUBITRIL 49 MG AND VALSARTAN 51 MG), BID
     Route: 065
     Dates: start: 20160827, end: 20161013
  2. ENTRESTO [Suspect]
     Active Substance: SACUBITRIL\VALSARTAN
     Dosage: 2 DF (SACUBITRIL 49 MG AND VALSARTAN 51 MG), UNK
     Route: 065
     Dates: start: 20161014, end: 20181123
  3. ENTRESTO [Suspect]
     Active Substance: SACUBITRIL\VALSARTAN
     Dosage: 1 DF (SACUBITRIL 24MG AND VALSARTAN 26MG)
     Route: 065
     Dates: start: 20181124
  4. ENTRESTO [Suspect]
     Active Substance: SACUBITRIL\VALSARTAN
     Dosage: 2 DF  (SACUBITRIL 24MG AND VALSARTAN 26MG)
     Route: 065
     Dates: start: 20160827, end: 20161013
  5. CARVEDILOL. [Concomitant]
     Active Substance: CARVEDILOL
     Indication: CARDIAC FAILURE
     Dosage: 25 MG, UNK
     Route: 048
     Dates: start: 20160405
  6. ENTRESTO [Suspect]
     Active Substance: SACUBITRIL\VALSARTAN
     Dosage: 1 DF (SACUBITRIL 49MG AND VALSARTAN 51MG)
     Route: 065
     Dates: start: 20181124
  7. ROSUVASTATIN. [Concomitant]
     Active Substance: ROSUVASTATIN
     Indication: CARDIAC FAILURE
     Dosage: 20 MG, UNK
     Route: 048
     Dates: start: 20160531
  8. SPIRONOLACTONE. [Concomitant]
     Active Substance: SPIRONOLACTONE
     Indication: CARDIAC FAILURE
     Dosage: 25 MG, UNK
     Route: 048
     Dates: start: 20160302

REACTIONS (15)
  - Cellulitis [Recovered/Resolved]
  - Pain in extremity [Recovered/Resolved]
  - Drug eruption [Recovered/Resolved]
  - Chest discomfort [Not Recovered/Not Resolved]
  - Dizziness [Not Recovered/Not Resolved]
  - Back pain [Recovered/Resolved]
  - Injection site pain [Unknown]
  - Influenza like illness [Unknown]
  - Rash [Unknown]
  - Pyrexia [Unknown]
  - Skin laceration [Recovered/Resolved]
  - Acute generalised exanthematous pustulosis [Unknown]
  - Injection site erythema [Unknown]
  - Herpes zoster [Recovered/Resolved]
  - Malaise [Unknown]

NARRATIVE: CASE EVENT DATE: 20170623
